FAERS Safety Report 16385176 (Version 2)
Quarter: 2019Q2

REPORT INFORMATION
  Report Type: Spontaneous
  Country: US (occurrence: US)
  Receive Date: 20190603
  Receipt Date: 20190625
  Transmission Date: 20190711
  Serious: Yes (Other)
  Sender: FDA-Public Use
  Company Number: US-CELGENEUS-USA-20190511598

PATIENT
  Age: 60 Year
  Sex: Male
  Weight: 76.1 kg

DRUGS (3)
  1. ABRAXANE [Suspect]
     Active Substance: PACLITAXEL
     Indication: DUCTAL ADENOCARCINOMA OF PANCREAS
     Route: 065
  2. GEMCITABINE [Suspect]
     Active Substance: GEMCITABINE\GEMCITABINE HYDROCHLORIDE
     Indication: DUCTAL ADENOCARCINOMA OF PANCREAS
     Dosage: 1850 MILLIGRAM/SQ. METER
     Route: 041
     Dates: start: 20190502, end: 20190502
  3. OLECLUMAB. [Concomitant]
     Active Substance: OLECLUMAB
     Indication: DUCTAL ADENOCARCINOMA OF PANCREAS
     Dosage: 3000 MILLIGRAM
     Route: 042
     Dates: start: 20190502, end: 20190502

REACTIONS (1)
  - Large intestinal haemorrhage [Recovering/Resolving]

NARRATIVE: CASE EVENT DATE: 20190523
